FAERS Safety Report 16214284 (Version 1)
Quarter: 2019Q2

REPORT INFORMATION
  Report Type: Spontaneous
  Country: US (occurrence: US)
  Receive Date: 20190418
  Receipt Date: 20190418
  Transmission Date: 20190711
  Serious: No
  Sender: FDA-Public Use
  Company Number: US-GLAXOSMITHKLINE-US2019066641

PATIENT
  Age: 62 Year
  Sex: Female

DRUGS (1)
  1. ALLI [Suspect]
     Active Substance: ORLISTAT
     Indication: WEIGHT LOSS DIET
     Dosage: UNK UNK, BID
     Route: 048
     Dates: start: 20190321, end: 20190410

REACTIONS (1)
  - Drug ineffective [Unknown]
